FAERS Safety Report 17877222 (Version 2)
Quarter: 2020Q3

REPORT INFORMATION
  Report Type: Report from Study
  Country: US (occurrence: US)
  Receive Date: 20200609
  Receipt Date: 20200701
  Transmission Date: 20201103
  Serious: Yes (Hospitalization)
  Sender: FDA-Public Use
  Company Number: US-ACTELION-A-NJ2020-200338

PATIENT
  Age: 35 Year
  Sex: Male
  Weight: 81.18 kg

DRUGS (8)
  1. LETAIRIS [Concomitant]
     Active Substance: AMBRISENTAN
     Dosage: UNK
  2. REVATIO [Concomitant]
     Active Substance: SILDENAFIL CITRATE
     Dosage: UNK
  3. VELETRI [Suspect]
     Active Substance: EPOPROSTENOL
     Dosage: 30 NG/KG, PER MIN
     Route: 042
  4. VELETRI [Suspect]
     Active Substance: EPOPROSTENOL
     Indication: PULMONARY HYPERTENSION
     Dosage: 34 NG/KG, PER MIN
     Route: 042
  5. VELETRI [Suspect]
     Active Substance: EPOPROSTENOL
     Dosage: 26 NG/KG, PER MIN
     Route: 042
  6. VELETRI [Suspect]
     Active Substance: EPOPROSTENOL
     Dosage: 22 NG/KG, PER MIN
     Route: 042
  7. VELETRI [Suspect]
     Active Substance: EPOPROSTENOL
     Dosage: 36 NG/KG, PER MIN
     Route: 042
  8. ORENITRAM [Concomitant]
     Active Substance: TREPROSTINIL
     Dosage: UNK

REACTIONS (14)
  - Pericardial effusion [Unknown]
  - Headache [Unknown]
  - Lung transplant [Unknown]
  - Diarrhoea [Unknown]
  - Arthralgia [Unknown]
  - Erythema [Unknown]
  - Nausea [Unknown]
  - Flushing [Unknown]
  - Rash pruritic [Recovering/Resolving]
  - Catheter site pruritus [Unknown]
  - Chest pain [Not Recovered/Not Resolved]
  - Abdominal discomfort [Unknown]
  - Pain in jaw [Not Recovered/Not Resolved]
  - Catheter management [Unknown]

NARRATIVE: CASE EVENT DATE: 20200617
